FAERS Safety Report 6166348-8 (Version None)
Quarter: 2009Q2

REPORT INFORMATION
  Report Type: 
  Country: None (occurrence: None)
  Receive Date: 20090422
  Receipt Date: 20090422
  Transmission Date: 20091009
  Serious: Yes (Death)
  Sender: FDA-Public Use
  Company Number: None

PATIENT
  Sex: Male

DRUGS (15)
  1. REVLIMID [Suspect]
     Dosage: 10MG  QD 21D/28D ORAL
     Route: 048
  2. DEXAMETHASONE TAB [Concomitant]
  3. PRILOSEC [Concomitant]
  4. LASIX POTASSIUM [Concomitant]
  5. DILAUDID [Concomitant]
  6. PROZAC [Concomitant]
  7. GLIPIZIDE [Concomitant]
  8. FELODIPINE [Concomitant]
  9. LISINOPRIL [Concomitant]
  10. ATENOLOL [Concomitant]
  11. ZOCOR [Concomitant]
  12. ISOSORBIDE DINITRATE [Concomitant]
  13. PLAVIX [Concomitant]
  14. FLEXERIL [Concomitant]
  15. TERAZOSIN HCL [Concomitant]

REACTIONS (5)
  - CARDIAC FAILURE CHRONIC [None]
  - GENERAL PHYSICAL HEALTH DETERIORATION [None]
  - PANCYTOPENIA [None]
  - PNEUMONIA [None]
  - URINARY TRACT INFECTION [None]
